FAERS Safety Report 12801055 (Version 1)
Quarter: 2016Q4

REPORT INFORMATION
  Report Type: Report from Study
  Country: US (occurrence: US)
  Receive Date: 20161003
  Receipt Date: 20161003
  Transmission Date: 20170207
  Serious: Yes (Other)
  Sender: FDA-Public Use
  Company Number: US-AMGEN-USASL2016133775

PATIENT

DRUGS (1)
  1. KYPROLIS [Suspect]
     Active Substance: CARFILZOMIB
     Indication: PRODUCT USED FOR UNKNOWN INDICATION
     Dosage: UNK
     Route: 065

REACTIONS (37)
  - Nephrolithiasis [Unknown]
  - Depression [Unknown]
  - Psychological factor affecting medical condition [Unknown]
  - Tooth disorder [Unknown]
  - Pyrexia [Unknown]
  - Sinus node dysfunction [Unknown]
  - Adverse drug reaction [Unknown]
  - Asthma [Unknown]
  - Obesity [Unknown]
  - Blood disorder [Unknown]
  - Asthenia [Unknown]
  - Fatigue [Unknown]
  - Type V hyperlipidaemia [Unknown]
  - Intestinal obstruction [Unknown]
  - Neutropenia [Unknown]
  - Arteriosclerosis [Unknown]
  - Vitamin B complex deficiency [Unknown]
  - Type 2 diabetes mellitus [Unknown]
  - Renal tubular dysfunction [Unknown]
  - Pancytopenia [Unknown]
  - Pain in extremity [Unknown]
  - Hypercalcaemia [Unknown]
  - Lymphoedema [Unknown]
  - Constipation [Unknown]
  - Diarrhoea [Unknown]
  - Oedema [Unknown]
  - Fluid overload [Unknown]
  - Localised oedema [Unknown]
  - Chronic kidney disease [Unknown]
  - Palliative care [Unknown]
  - Polyneuropathy [Unknown]
  - Cancer pain [Unknown]
  - Acidosis [Unknown]
  - Anaemia [Unknown]
  - Arthralgia [Unknown]
  - Incisional hernia [Unknown]
  - Essential hypertension [Unknown]

NARRATIVE: CASE EVENT DATE: 20160308
